FAERS Safety Report 16395823 (Version 1)
Quarter: 2019Q2

REPORT INFORMATION
  Report Type: Report from Study
  Country: US (occurrence: US)
  Receive Date: 20190605
  Receipt Date: 20190605
  Transmission Date: 20190711
  Serious: Yes (Hospitalization)
  Sender: FDA-Public Use
  Company Number: US-EISAI MEDICAL RESEARCH-EC-2019-054946

PATIENT
  Age: 61 Year
  Sex: Male
  Weight: 72.5 kg

DRUGS (8)
  1. LENVIMA [Suspect]
     Active Substance: LENVATINIB
     Indication: RENAL CANCER
     Route: 048
     Dates: start: 20190329, end: 201904
  2. PERCOCET [Concomitant]
     Active Substance: ACETAMINOPHEN\OXYCODONE HYDROCHLORIDE
  3. GABAPENTIN. [Concomitant]
     Active Substance: GABAPENTIN
  4. OXYCONTIN [Concomitant]
     Active Substance: OXYCODONE HYDROCHLORIDE
  5. AFINITOR [Concomitant]
     Active Substance: EVEROLIMUS
  6. XANAX [Concomitant]
     Active Substance: ALPRAZOLAM
  7. ENALAPRIL MALEATE. [Concomitant]
     Active Substance: ENALAPRIL MALEATE
  8. AMLODIPINE BESYLATE. [Concomitant]
     Active Substance: AMLODIPINE BESYLATE

REACTIONS (10)
  - Dehydration [Unknown]
  - Metastases to bone [Unknown]
  - Amnesia [Unknown]
  - Gait inability [Unknown]
  - Oropharyngeal pain [Unknown]
  - Dry mouth [Unknown]
  - Cancer pain [Unknown]
  - Hypotension [Unknown]
  - Bone pain [Unknown]
  - Hypophagia [Unknown]

NARRATIVE: CASE EVENT DATE: 2019
